FAERS Safety Report 24335273 (Version 1)
Quarter: 2024Q3

REPORT INFORMATION
  Report Type: Spontaneous
  Country: US (occurrence: US)
  Receive Date: 20240918
  Receipt Date: 20240918
  Transmission Date: 20241017
  Serious: No
  Sender: ABBVIE
  Company Number: US-ABBVIE-5916435

PATIENT
  Age: 66 Year
  Sex: Female

DRUGS (2)
  1. HUMIRA [Suspect]
     Active Substance: ADALIMUMAB
     Indication: Product used for unknown indication
     Dosage: UNKNOWN
     Route: 058
  2. OZEMPIC [Concomitant]
     Active Substance: SEMAGLUTIDE
     Indication: Glucose tolerance impaired
     Dosage: FORM STRENGTH: 0.5 MILLIGRAM
     Dates: start: 2023

REACTIONS (1)
  - Osteoporosis [Recovering/Resolving]

NARRATIVE: CASE EVENT DATE: 20240601
